FAERS Safety Report 7762156-2 (Version None)
Quarter: 2011Q3

REPORT INFORMATION
  Report Type: 
  Country: None (occurrence: None)
  Receive Date: 20110920
  Receipt Date: 20100819
  Transmission Date: 20111222
  Serious: Yes (Death, Hospitalization)
  Sender: FDA-Public Use
  Company Number: US-ROCHE-722281

PATIENT
  Sex: Male

DRUGS (1)
  1. VALGANCICLOVIR [Suspect]
     Dosage: FORM: PILLS, RECEIVED AT 8 AM AND 6 PM DAILY
     Route: 048
     Dates: start: 20100517, end: 20100810

REACTIONS (4)
  - NON-HODGKIN'S LYMPHOMA [None]
  - CELLULITIS [None]
  - HYPERTENSION [None]
  - PNEUMONIA [None]
